FAERS Safety Report 9947577 (Version 1)
Quarter: 2014Q1

REPORT INFORMATION
  Report Type: Report from Study
  Country: US (occurrence: US)
  Receive Date: 20140303
  Receipt Date: 20140303
  Transmission Date: 20141002
  Serious: No
  Sender: FDA-Public Use
  Company Number: US-ABBVIE-13P-163-1061064-00

PATIENT
  Age: 52 Year
  Sex: Female

DRUGS (3)
  1. HUMIRA [Suspect]
     Indication: RHEUMATOID ARTHRITIS
     Dates: start: 201209
  2. METHOTREXATE [Concomitant]
     Indication: ARTHRITIS
     Dosage: WEEKLY
  3. PREDNISONE [Concomitant]
     Indication: ARTHRITIS

REACTIONS (2)
  - Nasal congestion [Unknown]
  - Rhinorrhoea [Unknown]
